FAERS Safety Report 15214920 (Version 1)
Quarter: 2018Q3

REPORT INFORMATION
  Report Type: Spontaneous
  Country: FR (occurrence: FR)
  Receive Date: 20180730
  Receipt Date: 20180730
  Transmission Date: 20181010
  Serious: Yes (Other)
  Sender: FDA-Public Use
  Company Number: FR-SA-2018SA200490

PATIENT

DRUGS (2)
  1. RIFAMPICIN [Suspect]
     Active Substance: RIFAMPIN
  2. TROLEANDOMYCIN. [Suspect]
     Active Substance: TROLEANDOMYCIN

REACTIONS (1)
  - Jaundice cholestatic [Unknown]
